FAERS Safety Report 21549057 (Version 1)
Quarter: 2022Q4

REPORT INFORMATION
  Report Type: Spontaneous
  Country: US (occurrence: US)
  Receive Date: 20221103
  Receipt Date: 20221103
  Transmission Date: 20230113
  Serious: No
  Sender: FDA-Public Use
  Company Number: US-ELI_LILLY_AND_COMPANY-US202210004839

PATIENT
  Sex: Male

DRUGS (2)
  1. BEBTELOVIMAB [Suspect]
     Active Substance: BEBTELOVIMAB
     Indication: COVID-19
     Dosage: 175 MG, SINGLE
     Route: 065
     Dates: start: 202205
  2. BEBTELOVIMAB [Suspect]
     Active Substance: BEBTELOVIMAB
     Dosage: 175 MG, SINGLE
     Route: 065
     Dates: start: 202210

REACTIONS (5)
  - Erythema [Unknown]
  - Blister [Unknown]
  - Acne [Unknown]
  - Insomnia [Unknown]
  - Pruritus [Unknown]
